FAERS Safety Report 19056481 (Version 1)
Quarter: 2021Q1

REPORT INFORMATION
  Report Type: Spontaneous
  Country: FR (occurrence: FR)
  Receive Date: 20210324
  Receipt Date: 20210324
  Transmission Date: 20210420
  Serious: Yes (Hospitalization)
  Sender: FDA-Public Use
  Company Number: FR-MYLANLABS-2021M1015299

PATIENT
  Age: 32 Year
  Sex: Female
  Weight: 52 kg

DRUGS (3)
  1. ELETRIPTAN. [Suspect]
     Active Substance: ELETRIPTAN
     Indication: MIGRAINE
     Dosage: 40 MILLIGRAM, QW
     Route: 048
     Dates: start: 20201005
  2. KETOPROFEN. [Suspect]
     Active Substance: KETOPROFEN
     Indication: MIGRAINE
     Dosage: 100 MILLIGRAM, QW
     Route: 048
     Dates: start: 20190101
  3. ALMOTRIPTAN. [Suspect]
     Active Substance: ALMOTRIPTAN
     Indication: MIGRAINE
     Dosage: 12.5 MILLIGRAM, QW
     Route: 048
     Dates: start: 20190101, end: 20201005

REACTIONS (1)
  - Abortion induced [Recovered/Resolved with Sequelae]

NARRATIVE: CASE EVENT DATE: 20201215
